FAERS Safety Report 7648284-0 (Version None)
Quarter: 2011Q3

REPORT INFORMATION
  Report Type: 
  Country: None (occurrence: None)
  Receive Date: 20110801
  Receipt Date: 20110720
  Transmission Date: 20111222
  Serious: Yes (Hospitalization, Other)
  Sender: FDA-Public Use
  Company Number: US-BAYER-2011-040062

PATIENT
  Age: 29 Year
  Sex: Female
  Weight: 77.098 kg

DRUGS (5)
  1. ADVIL LIQUI-GELS [Concomitant]
     Dosage: 400 MG, PRN
     Route: 048
  2. DROSPIRENONE AND ETHINYL ESTRADIOL [Suspect]
     Indication: CONTRACEPTION
     Dosage: UNK
     Dates: start: 20080612, end: 20100726
  3. YAZ [Suspect]
     Indication: CONTRACEPTION
     Dosage: UNK
     Dates: start: 20080612, end: 20100726
  4. DROSPIRENONE AND ETHINYL ESTRADIOL [Suspect]
     Indication: PREMENSTRUAL SYNDROME
     Dosage: UNK
  5. YAZ [Suspect]
     Indication: PREMENSTRUAL SYNDROME

REACTIONS (4)
  - VENOUS THROMBOSIS [None]
  - DIZZINESS [None]
  - DEEP VEIN THROMBOSIS [None]
  - DYSPNOEA [None]
